FAERS Safety Report 8883531 (Version 1)
Quarter: 2012Q4

REPORT INFORMATION
  Report Type: 
  Country: CA (occurrence: CA)
  Receive Date: 20121102
  Receipt Date: 20121102
  Transmission Date: 20130627
  Serious: Yes (Hospitalization, Other)
  Sender: FDA-Public Use
  Company Number: CA-PFIZER INC-2012269552

PATIENT
  Age: 55 Year
  Sex: Male

DRUGS (1)
  1. CELEBREX [Suspect]
     Dosage: 200 mg, UNK
     Dates: start: 20000711

REACTIONS (5)
  - Ischaemic stroke [Unknown]
  - Mitral valve incompetence [Recovering/Resolving]
  - Sick sinus syndrome [Unknown]
  - Ventricular dysfunction [Unknown]
  - Atrial fibrillation [Unknown]
